FAERS Safety Report 8319498-1 (Version None)
Quarter: 2012Q1

REPORT INFORMATION
  Report Type: 
  Country: None (occurrence: None)
  Receive Date: 20120315
  Receipt Date: 20110613
  Transmission Date: 20120608
  Serious: Yes (Other)
  Sender: FDA-Public Use
  Company Number: PHHY2011US12141

PATIENT
  Age: 36 Year
  Sex: Female

DRUGS (1)
  1. GILENYA [Suspect]
     Indication: MULTIPLE SCLEROSIS
     Dosage: 0.5 MG, QD, ORAL
     Route: 048
     Dates: start: 20101220

REACTIONS (5)
  - EAR INFECTION [None]
  - MULTIPLE SCLEROSIS RELAPSE [None]
  - DIPLOPIA [None]
  - INJURY [None]
  - INFLUENZA [None]
